FAERS Safety Report 7798116-5 (Version None)
Quarter: 2011Q4

REPORT INFORMATION
  Report Type: 
  Country: None (occurrence: None)
  Receive Date: 20111004
  Receipt Date: 20110921
  Transmission Date: 20120403
  Serious: Yes (Hospitalization)
  Sender: FDA-Public Use
  Company Number: 1000024210

PATIENT
  Age: 83 Year
  Sex: Female

DRUGS (7)
  1. MEMANTINE HYDROCHLORIDE [Suspect]
     Indication: DEMENTIA ALZHEIMER'S TYPE
     Dosage: ORAL
     Route: 048
     Dates: end: 20110826
  2. TAHOR (ATORVASTATIN CALCIUMA) (ATORVASTATIN CALCIUM) [Concomitant]
  3. LOXEN (NICARDIPINE HYDROCHLORIDE) (NICARDIPINE HYDROCHLORIDE) [Concomitant]
  4. KARDEGIC (ACETYLSALICYLATE LYSINE) (ACETYLSALICYLATE LYSINE) [Concomitant]
  5. ARICEPT [Concomitant]
  6. TEGRETOL [Concomitant]
  7. RAMIPRIL [Concomitant]

REACTIONS (5)
  - GRAND MAL CONVULSION [None]
  - GENERAL PHYSICAL HEALTH DETERIORATION [None]
  - ASTHENIA [None]
  - PARTIAL SEIZURES [None]
  - APHASIA [None]
